FAERS Safety Report 24910731 (Version 1)
Quarter: 2025Q1

REPORT INFORMATION
  Report Type: Spontaneous
  Country: US (occurrence: US)
  Receive Date: 20250131
  Receipt Date: 20250131
  Transmission Date: 20250408
  Serious: Yes (Hospitalization, Other)
  Sender: BRISTOL-MYERS SQUIBB COMPANY
  Company Number: US-BRISTOL-MYERS SQUIBB COMPANY-2025-012096

PATIENT

DRUGS (1)
  1. OPDIVO [Suspect]
     Active Substance: NIVOLUMAB
     Indication: Clear cell renal cell carcinoma

REACTIONS (5)
  - Pneumonitis [Unknown]
  - Hyperthyroidism [Unknown]
  - Hypothyroidism [Unknown]
  - Stomatitis [Unknown]
  - Myocarditis [Unknown]
